FAERS Safety Report 4525658-8 (Version None)
Quarter: 2004Q4

REPORT INFORMATION
  Report Type: 
  Country: None (occurrence: None)
  Receive Date: 20041210
  Receipt Date: 20041129
  Transmission Date: 20050328
  Serious: Yes (Other)
  Sender: FDA-Public Use
  Company Number: 2004100646

PATIENT
  Age: 42 Year
  Sex: Female

DRUGS (1)
  1. CHLORPHENIRAMINE/PARACETAMOL/PSEUDOEPHEDRINE (PARACETAMOL, PSEUDOEPHED [Suspect]
     Indication: UPPER RESPIRATORY TRACT INFECTION
     Dosage: ORAL
     Route: 048

REACTIONS (1)
  - ACUTE GENERALISED EXANTHEMATOUS PUSTULOSIS [None]
